FAERS Safety Report 10771915 (Version 1)
Quarter: 2015Q1

REPORT INFORMATION
  Report Type: Spontaneous
  Country: SI (occurrence: SI)
  Receive Date: 20150206
  Receipt Date: 20150206
  Transmission Date: 20150721
  Serious: Yes (Life-Threatening, Hospitalization)
  Sender: FDA-Public Use
  Company Number: SI-ASTRAZENECA-2015SE06233

PATIENT
  Age: 48 Year
  Sex: Female

DRUGS (7)
  1. SEROQUEL [Suspect]
     Active Substance: QUETIAPINE FUMARATE
     Indication: SCHIZOAFFECTIVE DISORDER
     Route: 048
  2. VALPROAT [Concomitant]
     Active Substance: VALPROATE SODIUM
     Indication: AFFECTIVE DISORDER
  3. BIPERIDEN [Concomitant]
     Active Substance: BIPERIDEN
  4. HALOPERIDOL. [Concomitant]
     Active Substance: HALOPERIDOL
  5. PERINDOPRIL [Concomitant]
     Active Substance: PERINDOPRIL
  6. BROMAZEPAM [Concomitant]
     Active Substance: BROMAZEPAM
  7. ZOLPIDEM TARTRATE. [Concomitant]
     Active Substance: ZOLPIDEM TARTRATE

REACTIONS (10)
  - Electrocardiogram QRS complex prolonged [Recovered/Resolved]
  - Suicide attempt [Unknown]
  - Acute respiratory failure [Recovered/Resolved]
  - Bronchospasm [Unknown]
  - Somnolence [Recovered/Resolved]
  - Overdose [Unknown]
  - Pneumonia aspiration [Unknown]
  - Tachycardia paroxysmal [Recovered/Resolved]
  - Generalised tonic-clonic seizure [Unknown]
  - Hypotension [Recovered/Resolved]
